FAERS Safety Report 18838514 (Version 5)
Quarter: 2021Q4

REPORT INFORMATION
  Report Type: Spontaneous
  Country: SE (occurrence: SE)
  Receive Date: 20210203
  Receipt Date: 20211230
  Transmission Date: 20220303
  Serious: Yes (Other)
  Sender: FDA-Public Use
  Company Number: SE-PFIZER INC-2021083953

PATIENT
  Sex: Female

DRUGS (1)
  1. FRAGMIN [Suspect]
     Active Substance: DALTEPARIN SODIUM
     Dosage: 7500 IU
     Dates: start: 202009

REACTIONS (5)
  - Needle issue [Unknown]
  - Poor quality device used [Unknown]
  - Wound [Unknown]
  - Injection site pain [Unknown]
  - Maternal exposure during pregnancy [Unknown]
